FAERS Safety Report 8810246 (Version 1)
Quarter: 2012Q4

REPORT INFORMATION
  Report Type: 
  Country: BR (occurrence: BR)
  Receive Date: 20120926
  Receipt Date: 20120926
  Transmission Date: 20130627
  Serious: Yes (Hospitalization, Other)
  Sender: FDA-Public Use
  Company Number: BR-009507513-1209BRA009384

PATIENT
  Age: 53 Year
  Sex: Male
  Weight: 81 kg

DRUGS (4)
  1. ARCOXIA [Suspect]
     Indication: BACK PAIN
     Dosage: 60 mg, qd
     Route: 048
     Dates: start: 20120910, end: 20120914
  2. ARCOXIA [Suspect]
     Indication: NECK PAIN
  3. ARCOXIA [Suspect]
     Indication: MUSCULOSKELETAL PAIN
  4. ZOCOR [Suspect]
     Indication: BLOOD CHOLESTEROL
     Dosage: UNK
     Route: 048
     Dates: start: 201205

REACTIONS (1)
  - Hypertensive crisis [Not Recovered/Not Resolved]
